FAERS Safety Report 12271265 (Version 2)
Quarter: 2016Q2

REPORT INFORMATION
  Report Type: Spontaneous
  Country: US (occurrence: US)
  Receive Date: 20160415
  Receipt Date: 20160517
  Transmission Date: 20160815
  Serious: Yes (Hospitalization)
  Sender: FDA-Public Use
  Company Number: US-GLAXOSMITHKLINE-US2016GSK051193

PATIENT
  Age: 74 Year
  Sex: Female

DRUGS (2)
  1. TANZEUM [Suspect]
     Active Substance: ALBIGLUTIDE
     Indication: TYPE 2 DIABETES MELLITUS
     Dosage: 50 MG, WE
     Dates: end: 20160128
  2. TANZEUM [Suspect]
     Active Substance: ALBIGLUTIDE
     Dosage: 50 MG, WE
     Dates: start: 201603

REACTIONS (6)
  - Abdominal pain upper [Unknown]
  - Product solubility abnormal [Unknown]
  - Drug dose omission [Unknown]
  - Urinary tract infection [Unknown]
  - Product quality issue [Unknown]
  - Device use error [Unknown]

NARRATIVE: CASE EVENT DATE: 2016
